FAERS Safety Report 9825169 (Version 1)
Quarter: 2013Q4

REPORT INFORMATION
  Report Type: Spontaneous
  Country: US (occurrence: None)
  Receive Date: 20131031
  Receipt Date: 20131031
  Transmission Date: 20140711
  Serious: Yes (Life-Threatening, Hospitalization)
  Sender: FDA-Public Use
  Company Number: 2013S1000011

PATIENT
  Age: 45 Year
  Sex: Male
  Weight: 109 kg

DRUGS (6)
  1. KRYSTEXXA [Suspect]
     Route: 042
     Dates: start: 20130125, end: 20130125
  2. HYDROCORTISONE [Concomitant]
  3. CHLORPHENAMINE [Concomitant]
  4. PARACETAMOL [Concomitant]
  5. CLARITHROMYCIN [Concomitant]
  6. QVAR [Concomitant]

REACTIONS (2)
  - Infusion related reaction [None]
  - Therapeutic response decreased [None]
